FAERS Safety Report 7399499-0 (Version None)
Quarter: 2011Q1

REPORT INFORMATION
  Report Type: 
  Country: None (occurrence: None)
  Receive Date: 20110330
  Receipt Date: 20110322
  Transmission Date: 20110831
  Serious: Yes (Hospitalization)
  Sender: FDA-Public Use
  Company Number: 2011SA007836

PATIENT
  Age: 56 Year
  Sex: Female

DRUGS (6)
  1. FUSAFUNGINE (FUSAFUNGINE) [Concomitant]
  2. ESCITALOPRAM [Suspect]
     Indication: MAJOR DEPRESSION
     Dosage: 10 MILLIGRAM (S);DAILY; PO
     Route: 048
     Dates: start: 20101202
  3. OFLOXACIN [Concomitant]
  4. IBUPROFEN [Concomitant]
  5. IVY DRY (ISOPROPANOL/TANNIC ACID) [Concomitant]
  6. ENZYME PREPARATIONS (ENZYME PREPARATIONS) [Concomitant]

REACTIONS (3)
  - PNEUMONIA [None]
  - SARCOIDOSIS [None]
  - PLEURAL EFFUSION [None]
